FAERS Safety Report 6469527-5 (Version None)
Quarter: 2009Q4

REPORT INFORMATION
  Report Type: 
  Country: None (occurrence: None)
  Receive Date: 20091203
  Receipt Date: 20091123
  Transmission Date: 20100525
  Serious: Yes (Hospitalization)
  Sender: FDA-Public Use
  Company Number: US-PFIZER INC-2009302570

PATIENT
  Sex: Male

DRUGS (1)
  1. SUTENT [Suspect]
     Indication: PROSTATE CANCER

REACTIONS (1)
  - RENAL FAILURE [None]
